FAERS Safety Report 7327733-1 (Version None)
Quarter: 2011Q1

REPORT INFORMATION
  Report Type: 
  Country: None (occurrence: None)
  Receive Date: 20110303
  Receipt Date: 20110221
  Transmission Date: 20110831
  Serious: Yes (Other)
  Sender: FDA-Public Use
  Company Number: BR-BAYER-2011-016806

PATIENT
  Sex: Female
  Weight: 78 kg

DRUGS (5)
  1. FLUOXETINE [Concomitant]
     Indication: DEPRESSION
     Dosage: 1 DF, QD
     Route: 048
     Dates: start: 20070101
  2. CELLCEPT [Concomitant]
     Dosage: 1 DF, BID
     Route: 048
     Dates: start: 20070101
  3. OMEPRAZOLE [Concomitant]
     Dosage: 1 DF, QD
     Route: 048
     Dates: start: 20070101
  4. NEXAVAR [Suspect]
     Indication: LUNG NEOPLASM MALIGNANT
     Dosage: 2 DF, BID
     Route: 048
     Dates: start: 20100511, end: 20110201
  5. PROGRAF [Concomitant]
     Dosage: 2 DF, BID
     Route: 048
     Dates: start: 20070101

REACTIONS (6)
  - BREAST PAIN [None]
  - PAIN [None]
  - RASH [None]
  - BURNING FEET SYNDROME [None]
  - LUNG NEOPLASM MALIGNANT [None]
  - BONE PAIN [None]
